APPROVED DRUG PRODUCT: KYXATA
Active Ingredient: CARBOPLATIN
Strength: 80MG/8ML (10MG/ML)
Dosage Form/Route: SOLUTION;INTRAVENOUS
Application: N219921 | Product #002
Applicant: AVYXA HOLDINGS LLC
Approved: Aug 8, 2025 | RLD: Yes | RS: Yes | Type: RX

PATENTS:
Patent 12427104 | Expires: Apr 1, 2045